FAERS Safety Report 5475651-6 (Version None)
Quarter: 2007Q4

REPORT INFORMATION
  Report Type: 
  Country: None (occurrence: None)
  Receive Date: 20071003
  Receipt Date: 20070927
  Transmission Date: 20080405
  Serious: Yes (Hospitalization)
  Sender: FDA-Public Use
  Company Number: AU-AVENTIS-200718443GDDC

PATIENT
  Age: 68 Year
  Sex: Female

DRUGS (11)
  1. ARAVA [Suspect]
     Indication: RHEUMATOID ARTHRITIS
     Route: 048
     Dates: start: 20070418
  2. NOTEN [Concomitant]
     Dosage: DOSE: UNK
  3. NORVASC [Concomitant]
     Dosage: DOSE: UNK
  4. MICARDIS [Concomitant]
     Dosage: DOSE: UNK
  5. NOVOMIX                            /01475801/ [Concomitant]
     Dosage: DOSE: UNK
  6. PREDNISOLONE [Concomitant]
     Dosage: DOSE: UNK
  7. SALAZOPYRIN [Concomitant]
     Dosage: DOSE: UNK
  8. PANTOPRAZOLE SODIUM [Concomitant]
  9. ASPIRIN [Concomitant]
     Dosage: DOSE: UNK
  10. ZOCOR [Concomitant]
     Dosage: DOSE: UNK
  11. HYDRALAZINE HYDROCHLORIDE [Concomitant]
     Dosage: DOSE: UNK

REACTIONS (3)
  - ARRHYTHMIA [None]
  - HYPERTENSION [None]
  - PALPITATIONS [None]
